FAERS Safety Report 23723228 (Version 1)
Quarter: 2024Q2

REPORT INFORMATION
  Report Type: Spontaneous
  Country: US (occurrence: US)
  Receive Date: 20240409
  Receipt Date: 20240409
  Transmission Date: 20240716
  Serious: No
  Sender: FDA-Public Use
  Company Number: US-HISAMITSU-2023-US-040941

PATIENT
  Age: 73 Year
  Sex: Female
  Weight: 81.19 kg

DRUGS (9)
  1. TIMOLOL [Concomitant]
     Active Substance: TIMOLOL
  2. LISINOPRIL [Concomitant]
     Active Substance: LISINOPRIL
  3. OXYBUTYNIN [Concomitant]
     Active Substance: OXYBUTYNIN\OXYBUTYNIN CHLORIDE
  4. PRAVASTATIN [Concomitant]
     Active Substance: PRAVASTATIN
  5. ASPIRIN [Concomitant]
     Active Substance: ASPIRIN
  6. HERBALS\TURMERIC [Concomitant]
     Active Substance: HERBALS\TURMERIC
  7. GLUCOSAMINE [Concomitant]
     Active Substance: GLUCOSAMINE
  8. VITAMIN C [Concomitant]
     Active Substance: ASCORBIC ACID
  9. SALONPAS PAIN RELIEF [Suspect]
     Active Substance: MENTHOL\METHYL SALICYLATE
     Indication: Back pain
     Dosage: APPLIED ONE PATCH TO LOWER BACK FOR 8 HOURS
     Route: 061
     Dates: start: 20231120, end: 20231130

REACTIONS (1)
  - Application site pruritus [Not Recovered/Not Resolved]

NARRATIVE: CASE EVENT DATE: 20231120
